FAERS Safety Report 7114101-0 (Version None)
Quarter: 2010Q4

REPORT INFORMATION
  Report Type: 
  Country: None (occurrence: None)
  Receive Date: 20101119
  Receipt Date: 20101110
  Transmission Date: 20110411
  Serious: Yes (Other)
  Sender: FDA-Public Use
  Company Number: US-NAPPMUNDI-USA-2010-0046538

PATIENT
  Sex: Male

DRUGS (3)
  1. OXYCONTIN [Suspect]
     Indication: PAIN
     Dosage: 40 MG, SEE TEXT
     Dates: start: 20100801
  2. OXYCONTIN [Suspect]
     Dosage: 20 MG, SEE TEXT
  3. NORCO [Concomitant]
     Indication: BREAKTHROUGH PAIN

REACTIONS (15)
  - ACTIVITIES OF DAILY LIVING IMPAIRED [None]
  - DIARRHOEA [None]
  - DRUG INEFFECTIVE [None]
  - DRUG INTOLERANCE [None]
  - FATIGUE [None]
  - FOREIGN BODY [None]
  - HAEMATEMESIS [None]
  - HEADACHE [None]
  - HYPERHIDROSIS [None]
  - INSOMNIA [None]
  - NAUSEA [None]
  - PAIN [None]
  - PRODUCT QUALITY ISSUE [None]
  - RETCHING [None]
  - VOMITING [None]
